FAERS Safety Report 23364690 (Version 1)
Quarter: 2024Q1

REPORT INFORMATION
  Report Type: Spontaneous
  Country: US (occurrence: US)
  Receive Date: 20240104
  Receipt Date: 20240104
  Transmission Date: 20240410
  Serious: Yes (Other)
  Sender: FDA-Public Use
  Company Number: US-GLAXOSMITHKLINE-US2023181712

PATIENT
  Age: 52 Year
  Sex: Female

DRUGS (2)
  1. ADVAIR HFA [Suspect]
     Active Substance: FLUTICASONE PROPIONATE\SALMETEROL XINAFOATE
     Indication: Product used for unknown indication
     Dosage: UNK
  2. RHINOCORT [Suspect]
     Active Substance: BUDESONIDE
     Indication: Sinusitis
     Dosage: 2 DF, BID
     Dates: start: 20231205, end: 20231205

REACTIONS (4)
  - Chest discomfort [Recovered/Resolved with Sequelae]
  - Bronchospasm [Recovered/Resolved with Sequelae]
  - Dyspnoea [Unknown]
  - Asthma [Unknown]

NARRATIVE: CASE EVENT DATE: 20231226
